FAERS Safety Report 16920079 (Version 1)
Quarter: 2019Q4

REPORT INFORMATION
  Report Type: Report from Study
  Country: IT (occurrence: IT)
  Receive Date: 20191015
  Receipt Date: 20191015
  Transmission Date: 20200122
  Serious: Yes (Other)
  Sender: FDA-Public Use
  Company Number: IT-JNJFOC-20191009792

PATIENT
  Age: 30 Year
  Sex: Male

DRUGS (3)
  1. BENERVA [Concomitant]
     Active Substance: THIAMINE HYDROCHLORIDE
  2. DOXORUBICIN HYDROCHLORIDE. [Suspect]
     Active Substance: DOXORUBICIN HYDROCHLORIDE
     Indication: KAPOSI^S SARCOMA
     Route: 042
     Dates: start: 20190312, end: 20190523
  3. TIVICAY [Concomitant]
     Active Substance: DOLUTEGRAVIR SODIUM

REACTIONS (2)
  - Palmar-plantar erythrodysaesthesia syndrome [Recovering/Resolving]
  - Folliculitis [Recovering/Resolving]

NARRATIVE: CASE EVENT DATE: 20190523
